FAERS Safety Report 16089839 (Version 1)
Quarter: 2019Q1

REPORT INFORMATION
  Report Type: Spontaneous
  Country: CH (occurrence: CH)
  Receive Date: 20190319
  Receipt Date: 20190319
  Transmission Date: 20190418
  Serious: Yes (Hospitalization, Other)
  Sender: FDA-Public Use
  Company Number: CH-PFIZER INC-2019112890

PATIENT
  Age: 64 Year
  Sex: Male

DRUGS (26)
  1. TEMESTA [LORAZEPAM] [Concomitant]
     Active Substance: LORAZEPAM
     Dosage: UNK
  2. MAGNESIOCARD ORANGE [Concomitant]
     Dosage: 5 MMOL, 1X/DAY
     Route: 048
  3. CALCIMAGONA D3 [Concomitant]
     Active Substance: CALCIUM CARBONATE\CHOLECALCIFEROL
     Dosage: 1 DF, 1X/DAY
     Route: 048
  4. REMERON [Concomitant]
     Active Substance: MIRTAZAPINE
     Dosage: 15 MG, 1X/DAY
     Route: 048
  5. VEMLIDY [Concomitant]
     Active Substance: TENOFOVIR ALAFENAMIDE FUMARATE
     Dosage: 25 MG, 1X/DAY
     Route: 048
  6. NORVIR [Concomitant]
     Active Substance: RITONAVIR
     Dosage: 100 MG, 2X/DAY
     Route: 048
  7. NOVALGIN (METAMIZOLE SODIUM) [Suspect]
     Active Substance: METAMIZOLE SODIUM
     Dosage: 1 G, 3X/DAY
     Route: 042
     Dates: start: 20181219, end: 20181220
  8. WELLBUTRIN [Concomitant]
     Active Substance: BUPROPION HYDROCHLORIDE
     Dosage: 300 MG, 1X/DAY
     Route: 048
  9. TAMSULOSIN SANDOZ ECO [Concomitant]
     Dosage: 1 DF, 1X/DAY
     Route: 048
  10. NOVALGIN (METAMIZOLE SODIUM) [Suspect]
     Active Substance: METAMIZOLE SODIUM
     Indication: ANALGESIC THERAPY
     Dosage: 40 GTT, UNK (IN TOTAL)
     Route: 048
     Dates: start: 20181212, end: 20181212
  11. OXYCONTIN [Concomitant]
     Active Substance: OXYCODONE HYDROCHLORIDE
     Dosage: 10 MG, 3X/DAY
     Route: 048
  12. ASPIRIN CARDIO [Concomitant]
     Active Substance: ASPIRIN
     Dosage: 100 MG, 1X/DAY
     Route: 048
  13. CLEXANE [Concomitant]
     Active Substance: ENOXAPARIN SODIUM
     Dosage: 40 MG, 1X/DAY
     Route: 058
  14. TEMESTA [LORAZEPAM] [Concomitant]
     Active Substance: LORAZEPAM
     Dosage: UNK, AS NEEDED
     Route: 048
  15. MYCOBUTIN [Suspect]
     Active Substance: RIFABUTIN
     Indication: INFECTION
     Dosage: 150 MG, 1X/DAY
     Route: 048
     Dates: start: 20190103, end: 20190118
  16. LYRICA [Concomitant]
     Active Substance: PREGABALIN
     Dosage: 300 MG, 2X/DAY
     Route: 048
  17. PREZISTA [Concomitant]
     Active Substance: DARUNAVIR ETHANOLATE
     Dosage: 1200 MG, 2X/DAY
     Route: 048
  18. DAFALGAN [Concomitant]
     Active Substance: ACETAMINOPHEN
     Dosage: 1 G, 4X/DAY
     Route: 048
  19. NOVALGIN (METAMIZOLE SODIUM) [Suspect]
     Active Substance: METAMIZOLE SODIUM
     Dosage: 1 G, 3X/DAY
     Route: 042
     Dates: start: 20181212, end: 20181213
  20. CO-AMOXI [Suspect]
     Active Substance: AMOXICILLIN\CLAVULANATE POTASSIUM
     Indication: INFECTION
     Dosage: 2200 MG, 3X/DAY
     Route: 042
     Dates: start: 20181212, end: 20181218
  21. CO-AMOXI [Suspect]
     Active Substance: AMOXICILLIN\CLAVULANATE POTASSIUM
     Dosage: 2.2 G, 4X/DAY
     Route: 042
     Dates: start: 20190104, end: 20190118
  22. OXYCONTIN [Concomitant]
     Active Substance: OXYCODONE HYDROCHLORIDE
     Dosage: 20 MG, 3X/DAY
     Route: 048
  23. CRESTOR [Concomitant]
     Active Substance: ROSUVASTATIN CALCIUM
     Dosage: 20 MG, 1X/DAY
     Route: 048
  24. TIVICAY [Concomitant]
     Active Substance: DOLUTEGRAVIR SODIUM
     Dosage: 50 MG, 1X/DAY
     Route: 048
  25. MALTOFER FOL [Concomitant]
     Active Substance: FOLIC ACID\IRON POLYMALTOSE
     Dosage: 1 DF, 1X/DAY
     Route: 048
  26. TESTOGEL [Concomitant]
     Active Substance: TESTOSTERONE

REACTIONS (4)
  - Febrile neutropenia [Unknown]
  - Bicytopenia [Recovering/Resolving]
  - Anaemia [Recovering/Resolving]
  - Agranulocytosis [Recovering/Resolving]

NARRATIVE: CASE EVENT DATE: 20190118
